FAERS Safety Report 4446274-2 (Version None)
Quarter: 2004Q3

REPORT INFORMATION
  Report Type: 
  Country: None (occurrence: None)
  Receive Date: 20040907
  Receipt Date: 20040825
  Transmission Date: 20050211
  Serious: Yes (Other)
  Sender: FDA-Public Use
  Company Number: A0523349A

PATIENT
  Age: 60 Year
  Sex: Male

DRUGS (2)
  1. NICORETTE [Suspect]
     Indication: EX-SMOKER
     Dosage: TRANSBUCCAL
     Route: 002
     Dates: start: 20031001
  2. PRAVACHOL [Concomitant]

REACTIONS (1)
  - DEPENDENCE [None]
